FAERS Safety Report 10235831 (Version 1)
Quarter: 2014Q2

REPORT INFORMATION
  Report Type: Spontaneous
  Country: US (occurrence: US)
  Receive Date: 20140613
  Receipt Date: 20140613
  Transmission Date: 20141212
  Serious: No
  Sender: FDA-Public Use
  Company Number: US-ASTRAZENECA-2014SE39001

PATIENT
  Age: 22401 Day
  Sex: Female
  Weight: 90.7 kg

DRUGS (2)
  1. PULMICORT FLEXHALER [Suspect]
     Indication: ASTHMA
     Dosage: 2 PUFFS BID
     Route: 055
     Dates: start: 20140518
  2. IPRATROPIUM BROMIDE INHALATION [Concomitant]
     Indication: ASTHMA

REACTIONS (5)
  - Asthma [Unknown]
  - Fatigue [Unknown]
  - Circumstance or information capable of leading to medication error [Unknown]
  - Stress [Unknown]
  - Drug dose omission [Unknown]
